FAERS Safety Report 24757277 (Version 3)
Quarter: 2025Q3

REPORT INFORMATION
  Report Type: Spontaneous
  Country: US (occurrence: US)
  Receive Date: 20241220
  Receipt Date: 20250923
  Transmission Date: 20251020
  Serious: Yes (Other)
  Sender: ROCHE
  Company Number: US-ROCHE-10000158351

PATIENT

DRUGS (3)
  1. RITUXAN [Suspect]
     Active Substance: RITUXIMAB
     Indication: Systemic lupus erythematosus
     Route: 065
  2. ENSPRYNG [Suspect]
     Active Substance: SATRALIZUMAB-MWGE
     Indication: Systemic lupus erythematosus
     Route: 065
     Dates: start: 202312
  3. ENSPRYNG [Suspect]
     Active Substance: SATRALIZUMAB-MWGE
     Indication: Neuromyelitis optica spectrum disorder

REACTIONS (10)
  - Blood immunoglobulin G decreased [Unknown]
  - Sepsis [Unknown]
  - Pneumonia [Unknown]
  - Sinusitis [Unknown]
  - Pharyngitis streptococcal [Unknown]
  - Influenza [Unknown]
  - Off label use [Unknown]
  - Hypoaesthesia [Unknown]
  - Burning sensation [Unknown]
  - Primary immunodeficiency syndrome [Unknown]
